FAERS Safety Report 7901234-1 (Version None)
Quarter: 2011Q4

REPORT INFORMATION
  Report Type: 
  Country: None (occurrence: None)
  Receive Date: 20111108
  Receipt Date: 20111031
  Transmission Date: 20120403
  Serious: Yes (Other)
  Sender: FDA-Public Use
  Company Number: PHEH2010US03488

PATIENT
  Sex: Female

DRUGS (13)
  1. PAMIDRONATE DISODIUM [Suspect]
  2. AMOXICILLIN [Concomitant]
  3. RANITIDINE [Concomitant]
  4. PANTOPRAZOLE [Concomitant]
  5. MORPHINE [Concomitant]
  6. AREDIA [Suspect]
  7. TYLENOL-500 [Concomitant]
  8. LORTAB [Concomitant]
  9. CLARITHROMYCIN [Concomitant]
  10. OMEPRAZOLE [Concomitant]
  11. ZOCOR [Concomitant]
     Dates: start: 20100413
  12. PEPCID [Concomitant]
  13. LISINOPRIL [Concomitant]

REACTIONS (29)
  - OSTEONECROSIS OF JAW [None]
  - GASTRITIS [None]
  - OESOPHAGEAL STENOSIS [None]
  - DISABILITY [None]
  - PAIN [None]
  - DYSPEPSIA [None]
  - UPPER GASTROINTESTINAL HAEMORRHAGE [None]
  - ARTHRALGIA [None]
  - DYSPNOEA [None]
  - GASTROOESOPHAGEAL REFLUX DISEASE [None]
  - MULTIPLE MYELOMA [None]
  - HYPERCHOLESTEROLAEMIA [None]
  - INJURY [None]
  - HAEMATEMESIS [None]
  - ESSENTIAL HYPERTENSION [None]
  - CATARACT [None]
  - OSTEOPOROSIS [None]
  - ANAEMIA [None]
  - ANXIETY [None]
  - PEPTIC ULCER [None]
  - HELICOBACTER INFECTION [None]
  - OSTEOARTHRITIS [None]
  - GENERAL PHYSICAL HEALTH DETERIORATION [None]
  - ANHEDONIA [None]
  - DYSPHAGIA [None]
  - CONSTIPATION [None]
  - HIATUS HERNIA [None]
  - DIVERTICULUM [None]
  - ARTHRITIS [None]
